FAERS Safety Report 14204914 (Version 2)
Quarter: 2017Q4

REPORT INFORMATION
  Report Type: Report from Study
  Country: US (occurrence: US)
  Receive Date: 20171120
  Receipt Date: 20171211
  Transmission Date: 20180321
  Serious: Yes (Hospitalization)
  Sender: FDA-Public Use
  Company Number: US-ASTRAZENECA-2017SF17880

PATIENT
  Age: 16093 Day
  Sex: Male
  Weight: 52.2 kg

DRUGS (4)
  1. MEDI4736 [Suspect]
     Active Substance: DURVALUMAB
     Indication: HEAD AND NECK CANCER
     Dosage: 515 MG MILLIGRAM(S), DAILY DOSE
     Route: 042
     Dates: start: 20170829, end: 20170829
  2. ADXS11-001 [Suspect]
     Active Substance: INVESTIGATIONAL PRODUCT
     Indication: HEAD AND NECK CANCER
     Dosage: 0.53 ML MIL DAILY DOSE
     Route: 042
     Dates: start: 20170829, end: 20170912
  3. ADXS11-001 [Suspect]
     Active Substance: INVESTIGATIONAL PRODUCT
     Indication: PAPILLOMA VIRAL INFECTION
     Dosage: 0.53 ML MIL DAILY DOSE
     Route: 042
     Dates: start: 20170829, end: 20170912
  4. MEDI4736 [Suspect]
     Active Substance: DURVALUMAB
     Indication: PAPILLOMA VIRAL INFECTION
     Dosage: 515 MG MILLIGRAM(S), DAILY DOSE
     Route: 042
     Dates: start: 20170829, end: 20170829

REACTIONS (1)
  - Parainfluenzae virus infection [Recovered/Resolved]

NARRATIVE: CASE EVENT DATE: 20171108
